FAERS Safety Report 7472475-5 (Version None)
Quarter: 2011Q1

REPORT INFORMATION
  Report Type: 
  Country: None (occurrence: None)
  Receive Date: 20110302
  Receipt Date: 20100802
  Transmission Date: 20110831
  Serious: Yes (Death, Hospitalization)
  Sender: FDA-Public Use
  Company Number: 163-21880-10061086

PATIENT
  Age: 68 Year
  Sex: Male

DRUGS (6)
  1. ZOSYN [Concomitant]
  2. REVLIMID [Suspect]
     Indication: MULTIPLE MYELOMA
     Dosage: 25 MG, DAILY, PO; 10MG - 15MG, PO; 10 MG, QD - Q2ND DAY, PO; 10 MG, PO
     Route: 048
     Dates: start: 20091101
  3. REVLIMID [Suspect]
     Indication: MULTIPLE MYELOMA
     Dosage: 25 MG, DAILY, PO; 10MG - 15MG, PO; 10 MG, QD - Q2ND DAY, PO; 10 MG, PO
     Route: 048
     Dates: start: 20100101, end: 20100201
  4. REVLIMID [Suspect]
     Indication: MULTIPLE MYELOMA
     Dosage: 25 MG, DAILY, PO; 10MG - 15MG, PO; 10 MG, QD - Q2ND DAY, PO; 10 MG, PO
     Route: 048
     Dates: end: 20100601
  5. REVLIMID [Suspect]
     Indication: MULTIPLE MYELOMA
     Dosage: 25 MG, DAILY, PO; 10MG - 15MG, PO; 10 MG, QD - Q2ND DAY, PO; 10 MG, PO
     Route: 048
     Dates: start: 20091101
  6. VANCOMYCIN [Concomitant]

REACTIONS (5)
  - ATRIAL FIBRILLATION [None]
  - PNEUMONIA [None]
  - RENAL FAILURE [None]
  - SEPSIS [None]
  - ANAEMIA [None]
